FAERS Safety Report 5331317-4 (Version None)
Quarter: 2007Q2

REPORT INFORMATION
  Report Type: 
  Country: None (occurrence: None)
  Receive Date: 20070301
  Receipt Date: 20060515
  Transmission Date: 20071010
  Serious: Yes (Other)
  Sender: FDA-Public Use
  Company Number: 2518

PATIENT
  Age: 16 Year
  Sex: Female

DRUGS (1)
  1. ISOTRETINOIN [Suspect]
     Indication: ACNE
     Dosage: PO
     Route: 048
     Dates: start: 20050927, end: 20051201

REACTIONS (1)
  - LABORATORY TEST ABNORMAL [None]
